FAERS Safety Report 8990101 (Version 1)
Quarter: 2012Q4

REPORT INFORMATION
  Report Type: 
  Country: JP (occurrence: JP)
  Receive Date: 20121228
  Receipt Date: 20121228
  Transmission Date: 20130627
  Serious: Yes (Other)
  Sender: FDA-Public Use
  Company Number: JP-ALLERGAN-1218027US

PATIENT
  Age: 93 Year
  Sex: Male

DRUGS (5)
  1. DICLOFENAC [Suspect]
     Indication: POSTOPERATIVE CARE
     Dosage: UNK UNK, qid
     Route: 047
  2. FLUOROMETHOLONE [Suspect]
     Indication: CATARACT OPERATION COMPLICATION
     Dosage: UNK UNK, qid
     Route: 047
  3. TIMOLOL [Suspect]
     Indication: CATARACT OPERATION COMPLICATION
     Route: 047
  4. LEVOFLOXACIN [Suspect]
     Indication: POSTOPERATIVE CARE
     Dosage: UNK UNK, qid
     Route: 047
  5. BETAMETHASONE [Suspect]
     Indication: POSTOPERATIVE CARE
     Route: 047

REACTIONS (2)
  - Corneal epithelium defect [Unknown]
  - Intraocular pressure increased [Unknown]
